FAERS Safety Report 6334721-0 (Version None)
Quarter: 2009Q3

REPORT INFORMATION
  Report Type: 
  Country: None (occurrence: None)
  Receive Date: 20090831
  Receipt Date: 20090817
  Transmission Date: 20100115
  Serious: Yes (Hospitalization)
  Sender: FDA-Public Use
  Company Number: AT-PFIZER INC-2009259813

PATIENT
  Age: 80 Year

DRUGS (16)
  1. GLADEM [Suspect]
     Dosage: 50 MG, UNK
     Route: 041
  2. FUROHEXAL [Suspect]
     Dosage: 40 MG, 2X/DAY
  3. ASPIRIN [Concomitant]
     Dosage: 100 MG, TA
  4. CLYSMOL [Concomitant]
  5. BISOPROLOL FUMARATE [Concomitant]
     Dosage: 5 MG, (1/2-0-0)
     Route: 041
  6. DANCOR [Concomitant]
     Dosage: 10 MG, 2X/DAY (1-0-1) TA
  7. ENALAPRIL MALEATE [Concomitant]
     Dosage: 5 MG, 2X/DAY (1/20-1/2) TA
  8. EUTHYROX [Concomitant]
     Dosage: 75 UG, UNK
  9. HALCION [Concomitant]
     Dosage: 0.25 MG, TA
  10. METOGASTRON [Concomitant]
     Dosage: STRENGTH: 4MG/ML, DAILY DOSE: 20 DR 3X DAILY
  11. NITROLINGUAL [Concomitant]
     Dosage: 0.8 MG, KA
  12. NOVALGIN [Concomitant]
     Route: 041
  13. OMEPRAZOLE [Concomitant]
     Dosage: 20 MG, KA
  14. PLAVIX [Concomitant]
     Dosage: 75 MG, UNK
     Route: 041
  15. SIMVASTATIN [Concomitant]
     Dosage: 40 MG, UNK
     Route: 041
  16. SPIRONOLACTONE [Concomitant]
     Dosage: 50 MG, TA

REACTIONS (2)
  - GENERAL PHYSICAL HEALTH DETERIORATION [None]
  - HYPONATRAEMIA [None]
